FAERS Safety Report 12774862 (Version 1)
Quarter: 2016Q3

REPORT INFORMATION
  Report Type: Spontaneous
  Country: US (occurrence: US)
  Receive Date: 20160921
  Receipt Date: 20160921
  Transmission Date: 20161109
  Serious: No
  Sender: FDA-Public Use
  Company Number: None

PATIENT
  Sex: Female

DRUGS (1)
  1. HUMIRA [Suspect]
     Active Substance: ADALIMUMAB
     Indication: PSORIASIS
     Route: 058
     Dates: start: 2012, end: 2016

REACTIONS (6)
  - Pain [None]
  - Gastric disorder [None]
  - Diarrhoea [None]
  - Lethargy [None]
  - Headache [None]
  - Abdominal distension [None]
